FAERS Safety Report 11553343 (Version 1)
Quarter: 2015Q3

REPORT INFORMATION
  Report Type: Spontaneous
  Country: KR (occurrence: KR)
  Receive Date: 20150925
  Receipt Date: 20150925
  Transmission Date: 20151125
  Serious: Yes (Hospitalization)
  Sender: FDA-Public Use
  Company Number: KR-AMGEN-KORCT2015099593

PATIENT
  Age: 71 Year
  Sex: Male
  Weight: 74.3 kg

DRUGS (83)
  1. VINCRISTINE [Concomitant]
     Active Substance: VINCRISTINE
     Dosage: 2 MG, UNK
     Route: 042
     Dates: start: 20150727, end: 20150727
  2. VINCRISTINE [Concomitant]
     Active Substance: VINCRISTINE
     Dosage: 2 MG, UNK
     Route: 042
     Dates: start: 20150907, end: 20150907
  3. PREDNISOLONE. [Concomitant]
     Active Substance: PREDNISOLONE
     Dosage: 100 MG, UNK
     Route: 048
     Dates: start: 20150704, end: 20150704
  4. EMEND [Concomitant]
     Active Substance: APREPITANT
     Dosage: 80 MG, UNK
     Route: 048
     Dates: start: 20150728, end: 20150729
  5. EMEND [Concomitant]
     Active Substance: APREPITANT
     Dosage: 125 MG, UNK
     Route: 048
     Dates: start: 20150817, end: 20150817
  6. EMEND [Concomitant]
     Active Substance: APREPITANT
     Dosage: 80 MG, UNK
     Route: 048
     Dates: start: 20150818, end: 20150819
  7. PENIRAMIN [Concomitant]
     Dosage: 8 MG, UNK
     Route: 042
     Dates: start: 20150901, end: 20150901
  8. CITOPCIN                           /00697202/ [Concomitant]
     Dosage: 1000 MG, UNK
     Route: 048
     Dates: start: 20150702, end: 20150708
  9. ALOXI [Concomitant]
     Active Substance: PALONOSETRON HYDROCHLORIDE
     Dosage: 0.25 MG, UNK
     Route: 042
     Dates: start: 20150817, end: 20150817
  10. CARDIOXANE [Concomitant]
     Active Substance: DEXRAZOXANE HYDROCHLORIDE
     Dosage: 900 MG, UNK
     Route: 042
     Dates: start: 20150907, end: 20150907
  11. LASIX [Concomitant]
     Active Substance: FUROSEMIDE
     Dosage: 40 MG, UNK
     Route: 042
     Dates: start: 20150707, end: 20150707
  12. BACTROBAN [Concomitant]
     Active Substance: MUPIROCIN\MUPIROCIN CALCIUM
     Dosage: 10 G, UNK
     Route: 065
     Dates: start: 20150806, end: 20150806
  13. RITUXIMAB [Concomitant]
     Active Substance: RITUXIMAB
     Dosage: 670 MG, UNK
     Route: 042
     Dates: start: 20150817, end: 20150817
  14. DOXORUBICIN [Concomitant]
     Active Substance: DOXORUBICIN
     Dosage: 90 MG, UNK
     Route: 042
     Dates: start: 20150907, end: 20150907
  15. FINASTERIDE. [Concomitant]
     Active Substance: FINASTERIDE
     Dosage: 5 MG, UNK
     Route: 048
     Dates: start: 201505, end: 20150719
  16. TACENOL [Concomitant]
     Dosage: 1300 MG, UNK
     Route: 048
     Dates: start: 20150817, end: 20150817
  17. PENIRAMIN [Concomitant]
     Dosage: 4 MG, UNK
     Route: 042
     Dates: start: 20150702, end: 20150702
  18. PENIRAMIN [Concomitant]
     Dosage: 8 MG, UNK
     Route: 042
     Dates: start: 20150907, end: 20150907
  19. MACPERAN [Concomitant]
     Dosage: 60 MG, UNK
     Route: 042
     Dates: start: 20150817, end: 20150817
  20. CARDIOXANE [Concomitant]
     Active Substance: DEXRAZOXANE HYDROCHLORIDE
     Dosage: 870 MG, UNK
     Route: 042
     Dates: start: 20150704, end: 20150704
  21. SODIUM BICARBONATE. [Concomitant]
     Active Substance: SODIUM BICARBONATE
     Dosage: 40 ML, UNK
     Route: 042
     Dates: start: 20150817, end: 20150818
  22. GODEX [Concomitant]
     Dosage: 4 DF, UNK
     Route: 048
     Dates: start: 20150708, end: 20150714
  23. STOGAR [Concomitant]
     Dosage: 20 MG, UNK
     Route: 048
     Dates: start: 20150715, end: 20150719
  24. RITUXIMAB [Concomitant]
     Active Substance: RITUXIMAB
     Dosage: 650 MG, UNK
     Route: 042
     Dates: start: 20150704, end: 20150704
  25. CYCLOPHOSPHAMIDE. [Concomitant]
     Active Substance: CYCLOPHOSPHAMIDE
     Dosage: 1300 MG, UNK
     Route: 042
     Dates: start: 20150704, end: 20150704
  26. CYCLOPHOSPHAMIDE. [Concomitant]
     Active Substance: CYCLOPHOSPHAMIDE
     Dosage: 1340 MG, UNK
     Route: 042
     Dates: start: 20150907, end: 20150907
  27. EMEND [Concomitant]
     Active Substance: APREPITANT
     Dosage: 125 MG, UNK
     Route: 048
     Dates: start: 20150727, end: 20150727
  28. EMEND [Concomitant]
     Active Substance: APREPITANT
     Dosage: 80 MG, UNK
     Route: 042
     Dates: start: 20150908, end: 20150908
  29. TACENOL [Concomitant]
     Dosage: 1300 MG, UNK
     Route: 048
     Dates: start: 20150907, end: 20150907
  30. PANTOLOC                           /01263204/ [Concomitant]
     Active Substance: PANTOPRAZOLE SODIUM
     Dosage: 20 MG, UNK
     Route: 048
     Dates: start: 20150726
  31. ALOXI [Concomitant]
     Active Substance: PALONOSETRON HYDROCHLORIDE
     Dosage: 0.25 MG, UNK
     Route: 042
     Dates: start: 20150907, end: 20150907
  32. CARDIOXANE [Concomitant]
     Active Substance: DEXRAZOXANE HYDROCHLORIDE
     Dosage: 900 MG, UNK
     Route: 042
     Dates: start: 20150817, end: 20150817
  33. VACROVIR                           /00587301/ [Concomitant]
     Dosage: 5 G, UNK
     Route: 065
     Dates: start: 20150817, end: 20150817
  34. DOXORUBICIN [Concomitant]
     Active Substance: DOXORUBICIN
     Dosage: 90 MG, UNK
     Route: 042
     Dates: start: 20150727, end: 20150727
  35. TACENOL [Concomitant]
     Dosage: 1300 MG, UNK
     Route: 048
     Dates: start: 20150702, end: 20150702
  36. PANTOLOC                           /01263204/ [Concomitant]
     Active Substance: PANTOPRAZOLE SODIUM
     Dosage: 20 MG, UNK
     Route: 048
     Dates: start: 20150704, end: 20150704
  37. ALOXI [Concomitant]
     Active Substance: PALONOSETRON HYDROCHLORIDE
     Dosage: 0.25 MG, UNK
     Route: 042
     Dates: start: 20150704, end: 20150704
  38. LASIX [Concomitant]
     Active Substance: FUROSEMIDE
     Dosage: 10 MG, UNK
     Route: 042
     Dates: start: 20150706, end: 20150706
  39. LASIX [Concomitant]
     Active Substance: FUROSEMIDE
     Dosage: 20 MG, UNK
     Route: 042
     Dates: start: 20150708, end: 20150708
  40. NESP [Concomitant]
     Active Substance: DARBEPOETIN ALFA
     Dosage: 540 MUG, UNK
     Route: 065
     Dates: start: 20150708, end: 20150708
  41. THRUPAS [Concomitant]
     Dosage: 8 MG, UNK
     Route: 048
     Dates: start: 20150720
  42. RITUXIMAB [Concomitant]
     Active Substance: RITUXIMAB
     Dosage: 670 MG, UNK
     Route: 042
     Dates: start: 20150907, end: 20150907
  43. PREDNISOLONE. [Concomitant]
     Active Substance: PREDNISOLONE
     Dosage: 100 MG, UNK
     Route: 048
     Dates: start: 20150727, end: 20150727
  44. LIDOCAIN                           /00033401/ [Concomitant]
     Active Substance: LIDOCAINE
     Dosage: 400 MG, UNK
     Route: 065
     Dates: start: 20150702, end: 20150702
  45. BARACLUDE [Concomitant]
     Active Substance: ENTECAVIR
     Dosage: 0.5 MG, UNK
     Route: 048
     Dates: start: 20150702
  46. SODIUM BICARBONATE. [Concomitant]
     Active Substance: SODIUM BICARBONATE
     Dosage: 40 ML, UNK
     Route: 042
     Dates: start: 20150704, end: 20150706
  47. MESULID [Concomitant]
     Active Substance: NIMESULIDE
     Dosage: 200 MG, UNK
     Route: 048
     Dates: start: 20150715, end: 20150719
  48. G-LASTA [Suspect]
     Active Substance: PEGFILGRASTIM
     Dosage: 6 MG, Q3WK
     Route: 058
     Dates: start: 20150818
  49. CYCLOPHOSPHAMIDE. [Concomitant]
     Active Substance: CYCLOPHOSPHAMIDE
     Dosage: 1340 MG, UNK
     Route: 042
     Dates: start: 20150817, end: 20150817
  50. DOXORUBICIN [Concomitant]
     Active Substance: DOXORUBICIN
     Dosage: 87 MG, UNK
     Route: 042
     Dates: start: 20150704, end: 20150704
  51. PREDNISOLONE. [Concomitant]
     Active Substance: PREDNISOLONE
     Dosage: 100 MG, UNK
     Route: 048
     Dates: start: 20150817, end: 20150817
  52. EMEND [Concomitant]
     Active Substance: APREPITANT
     Dosage: 125 MG, UNK
     Route: 048
     Dates: start: 20150704, end: 20150704
  53. EMEND [Concomitant]
     Active Substance: APREPITANT
     Dosage: 80 MG, UNK
     Route: 048
     Dates: start: 20150705, end: 20150706
  54. EMEND [Concomitant]
     Active Substance: APREPITANT
     Dosage: 125 MG, UNK
     Route: 042
     Dates: start: 20150907, end: 20150907
  55. PENIRAMIN [Concomitant]
     Dosage: 4 MG, UNK
     Route: 042
     Dates: start: 20150817, end: 20150817
  56. PETHIDINE [Concomitant]
     Active Substance: MEPERIDINE
     Dosage: 25 MG, UNK
     Route: 065
     Dates: start: 20150703, end: 20150703
  57. ALOXI [Concomitant]
     Active Substance: PALONOSETRON HYDROCHLORIDE
     Dosage: 0.25 MG, UNK
     Route: 042
     Dates: start: 20150727, end: 20150727
  58. CARDIOXANE [Concomitant]
     Active Substance: DEXRAZOXANE HYDROCHLORIDE
     Dosage: 900 MG, UNK
     Route: 042
     Dates: start: 20150727, end: 20150727
  59. LACTICARE HC                       /00028601/ [Concomitant]
     Dosage: 118 ML, UNK
     Route: 065
     Dates: start: 20150806, end: 20150806
  60. G-LASTA [Suspect]
     Active Substance: PEGFILGRASTIM
     Indication: FEBRILE NEUTROPENIA
     Dosage: 6 MG, Q3WK
     Route: 058
     Dates: start: 20150706
  61. G-LASTA [Suspect]
     Active Substance: PEGFILGRASTIM
     Dosage: 6 MG, Q3WK
     Route: 058
     Dates: start: 20150908
  62. CYCLOPHOSPHAMIDE. [Concomitant]
     Active Substance: CYCLOPHOSPHAMIDE
     Dosage: 1350 MG, UNK
     Route: 042
     Dates: start: 20150727, end: 20150727
  63. PREDNISOLONE. [Concomitant]
     Active Substance: PREDNISOLONE
     Dosage: 100 MG, UNK
     Route: 048
     Dates: start: 20150907, end: 20150907
  64. TACENOL [Concomitant]
     Dosage: 1300 MG, UNK
     Route: 048
     Dates: start: 20150704, end: 20150704
  65. PENIRAMIN [Concomitant]
     Dosage: 4 MG, UNK
     Route: 042
     Dates: start: 20150727, end: 20150727
  66. GENTAMYCIN                         /00047101/ [Concomitant]
     Active Substance: GENTAMICIN
     Dosage: 80 MG, UNK
     Route: 065
     Dates: start: 20150702, end: 20150702
  67. MACPERAN [Concomitant]
     Dosage: 60 MG, UNK
     Route: 042
     Dates: start: 20150704, end: 20150704
  68. MACPERAN [Concomitant]
     Dosage: 60 MG, UNK
     Route: 042
     Dates: start: 20150727, end: 20150727
  69. MACPERAN [Concomitant]
     Dosage: 60 MG, UNK
     Route: 042
     Dates: start: 20150907, end: 20150907
  70. SODIUM BICARBONATE. [Concomitant]
     Active Substance: SODIUM BICARBONATE
     Dosage: 40 ML, UNK
     Route: 042
     Dates: start: 20150727, end: 20150728
  71. AZEPTIN                            /00884001/ [Concomitant]
     Active Substance: AZELASTINE
     Dosage: 2 MG, UNK
     Route: 048
     Dates: start: 20150817
  72. G-LASTA [Suspect]
     Active Substance: PEGFILGRASTIM
     Dosage: 6 MG, Q3WK
     Route: 058
     Dates: start: 20150728
  73. RITUXIMAB [Concomitant]
     Active Substance: RITUXIMAB
     Dosage: 675 MG, UNK
     Route: 042
     Dates: start: 20150727, end: 20150727
  74. DOXORUBICIN [Concomitant]
     Active Substance: DOXORUBICIN
     Dosage: 90 MG, UNK
     Route: 042
     Dates: start: 20150817, end: 20150817
  75. VINCRISTINE [Concomitant]
     Active Substance: VINCRISTINE
     Dosage: 2 MG, UNK
     Route: 042
     Dates: start: 20150704, end: 20150704
  76. VINCRISTINE [Concomitant]
     Active Substance: VINCRISTINE
     Dosage: 2 MG, UNK
     Route: 042
     Dates: start: 20150817, end: 20150817
  77. TACENOL [Concomitant]
     Dosage: 1300 MG, UNK
     Route: 048
     Dates: start: 20150727, end: 20150727
  78. PENIRAMIN [Concomitant]
     Dosage: 4 MG, UNK
     Route: 042
     Dates: start: 20150703, end: 20150703
  79. PENIRAMIN [Concomitant]
     Dosage: 4 MG, UNK
     Route: 042
     Dates: start: 20150906, end: 20150906
  80. CEFOLATAM [Concomitant]
     Active Substance: CEFOPERAZONE SODIUM\SULBACTAM SODIUM
     Dosage: 2 G, UNK
     Route: 042
     Dates: start: 20150702, end: 20150708
  81. MESEXIN [Concomitant]
     Dosage: 3000 MG, UNK
     Route: 048
     Dates: start: 20150715, end: 20150719
  82. HEXAMEDINE [Concomitant]
     Dosage: 100 ML, UNK
     Route: 065
     Dates: start: 20150806, end: 20150806
  83. HEXAMEDINE [Concomitant]
     Dosage: 200 ML, UNK
     Route: 048
     Dates: start: 20150818, end: 20150818

REACTIONS (1)
  - Pneumonia [Recovered/Resolved]

NARRATIVE: CASE EVENT DATE: 20150908
